FAERS Safety Report 9233125 (Version 1)
Quarter: 2013Q1

REPORT INFORMATION
  Report Type: Spontaneous
  Country: US (occurrence: None)
  Receive Date: 20121031
  Receipt Date: 20121031
  Transmission Date: 20140127
  Serious: No
  Sender: FDA-Public Use
  Company Number: PHEH2012US012151

PATIENT
  Age: 48 Year
  Sex: Female

DRUGS (6)
  1. GILENYA [Suspect]
     Indication: MULTIPLE SCLEROSIS
     Route: 048
  2. NEURONTIN (GABAPENTIN) [Concomitant]
  3. CRESTOR (ROSUVASTATIN CALCIUM) [Concomitant]
  4. PROZAC (FLUOXETINE HYDROCHLORIDE) [Concomitant]
  5. NUVIGIL (ARMODAFINIL) [Concomitant]
  6. ASPIRIN ENTERIC COATED (ACETYLSALICYLIC ACID) [Concomitant]

REACTIONS (1)
  - Influenza like illness [None]
